FAERS Safety Report 9972313 (Version 1)
Quarter: 2014Q1

REPORT INFORMATION
  Report Type: Spontaneous
  Country: US (occurrence: None)
  Receive Date: 20140305
  Receipt Date: 20140305
  Transmission Date: 20141002
  Serious: Yes (Hospitalization, Other)
  Sender: FDA-Public Use
  Company Number: None

PATIENT
  Age: 86 Year
  Sex: Female

DRUGS (4)
  1. ASPIRIN 81 MG [Suspect]
     Indication: CORONARY ARTERY DISEASE
     Dosage: 1 PILL, QD, ORAL
     Route: 048
  2. DONEPEZIL (ARICEPT) [Concomitant]
  3. ALENDRONATE (FOSAMAX) [Concomitant]
  4. LOSARTAN (COZAAR) [Concomitant]

REACTIONS (2)
  - Haemorrhage intracranial [None]
  - Cerebrovascular accident [None]
